FAERS Safety Report 13094778 (Version 2)
Quarter: 2017Q3

REPORT INFORMATION
  Report Type: Spontaneous
  Country: NL (occurrence: NL)
  Receive Date: 20170106
  Receipt Date: 20170705
  Transmission Date: 20171127
  Serious: Yes (Life-Threatening, Hospitalization, Other)
  Sender: FDA-Public Use
  Company Number: NL-IMPAX LABORATORIES, INC-2016-IPXL-02494

PATIENT
  Age: 54 Year
  Sex: Female

DRUGS (1)
  1. MINOCYCLINE HYDROCHLORIDE. [Suspect]
     Active Substance: MINOCYCLINE HYDROCHLORIDE
     Indication: ROSACEA
     Dosage: 100 MG, UNK
     Route: 065

REACTIONS (3)
  - Respiratory failure [Recovered/Resolved]
  - Lung disorder [Recovered/Resolved]
  - Systemic inflammatory response syndrome [Recovered/Resolved]
